FAERS Safety Report 6182908-2 (Version None)
Quarter: 2009Q2

REPORT INFORMATION
  Report Type: 
  Country: None (occurrence: None)
  Receive Date: 20090507
  Receipt Date: 20090427
  Transmission Date: 20091009
  Serious: Yes (Hospitalization, Other)
  Sender: FDA-Public Use
  Company Number: US-MERCK-0706USA04494

PATIENT
  Age: 52 Year
  Sex: Female

DRUGS (12)
  1. FOSAMAX [Suspect]
     Indication: OSTEOPOROSIS
     Route: 048
     Dates: start: 20020801, end: 20060401
  2. FOSAMAX [Suspect]
     Indication: OSTEOPENIA
     Route: 048
     Dates: start: 20020801, end: 20060401
  3. TRAMADOL HYDROCHLORIDE [Concomitant]
     Indication: PAIN
     Route: 065
     Dates: start: 20010101
  4. OXYCONTIN [Concomitant]
     Indication: PAIN
     Route: 065
     Dates: start: 20040101
  5. SINGULAIR [Concomitant]
     Indication: ASTHMA
     Route: 048
     Dates: start: 19990101
  6. MAXZIDE [Concomitant]
     Indication: POLYURIA
     Route: 065
     Dates: start: 19990101
  7. KLOR-CON [Concomitant]
     Indication: MINERAL SUPPLEMENTATION
     Route: 065
     Dates: start: 19990101
  8. LORTAB [Concomitant]
     Indication: PAIN
     Route: 065
     Dates: start: 19960101
  9. ALBUTEROL [Concomitant]
     Indication: ASTHMA
     Route: 065
     Dates: start: 19990101
  10. PHENERGAN HCL [Concomitant]
     Indication: NAUSEA
     Route: 065
     Dates: start: 20020101
  11. PREVACID [Concomitant]
     Indication: ANTACID THERAPY
     Route: 065
     Dates: start: 20020101
  12. ALLEGRA [Concomitant]
     Indication: ANTIALLERGIC THERAPY
     Route: 065
     Dates: start: 20020101

REACTIONS (22)
  - ABDOMINAL HERNIA OBSTRUCTIVE [None]
  - ABDOMINAL PANNICULECTOMY [None]
  - ABDOMINAL WOUND DEHISCENCE [None]
  - ANXIETY [None]
  - ARTHROPATHY [None]
  - BLOOD ALKALINE PHOSPHATASE INCREASED [None]
  - DEEP VEIN THROMBOSIS [None]
  - DEPRESSION [None]
  - HAEMATOMA [None]
  - HEPATIC ENZYME INCREASED [None]
  - INTERTRIGO [None]
  - INTERVERTEBRAL DISC DEGENERATION [None]
  - IRRITABLE BOWEL SYNDROME [None]
  - LIGAMENT RUPTURE [None]
  - OEDEMA PERIPHERAL [None]
  - OSTEONECROSIS [None]
  - PROTHROMBIN LEVEL INCREASED [None]
  - PULMONARY EMBOLISM [None]
  - SEROMA [None]
  - SINUSITIS [None]
  - TENDON INJURY [None]
  - TYMPANIC MEMBRANE PERFORATION [None]
